FAERS Safety Report 10464783 (Version 3)
Quarter: 2014Q4

REPORT INFORMATION
  Report Type: Spontaneous
  Country: US (occurrence: US)
  Receive Date: 20140919
  Receipt Date: 20141201
  Transmission Date: 20150528
  Serious: Yes (Hospitalization)
  Sender: FDA-Public Use
  Company Number: US-B.I. PHARMACEUTICALS,INC./RIDGEFIELD-2014-BI-43583BP

PATIENT
  Age: 74 Year
  Sex: Female

DRUGS (1)
  1. PRADAXA [Suspect]
     Active Substance: DABIGATRAN ETEXILATE MESYLATE
     Indication: ATRIAL FIBRILLATION
     Dosage: 300 MG
     Route: 048
     Dates: start: 201101, end: 201108

REACTIONS (12)
  - Dyslipidaemia [Unknown]
  - Contusion [Unknown]
  - Device related sepsis [Unknown]
  - Atrial fibrillation [Unknown]
  - Lower gastrointestinal haemorrhage [Recovered/Resolved]
  - Respiratory distress [Unknown]
  - Urinary tract infection [Unknown]
  - Cardiac failure congestive [Unknown]
  - Mental status changes [Unknown]
  - Hypoxia [Unknown]
  - Diastolic dysfunction [Unknown]
  - Staphylococcal bacteraemia [Unknown]

NARRATIVE: CASE EVENT DATE: 201104
